FAERS Safety Report 10152665 (Version 1)
Quarter: 2014Q2

REPORT INFORMATION
  Report Type: Spontaneous
  Country: US (occurrence: US)
  Receive Date: 20140505
  Receipt Date: 20140505
  Transmission Date: 20141212
  Serious: Yes (Other)
  Sender: FDA-Public Use
  Company Number: US-ACTAVIS-2014-08827

PATIENT
  Sex: Male

DRUGS (8)
  1. CLONIDINE HYDROCHLORIDE (AELLC) [Suspect]
     Indication: PRODUCT USED FOR UNKNOWN INDICATION
     Dosage: 0.1 MG, UNKNOWN
     Route: 065
     Dates: start: 199712, end: 199806
  2. DEPAKOTE [Concomitant]
     Indication: PRODUCT USED FOR UNKNOWN INDICATION
     Dosage: 250 MG, UNKNOWN
     Route: 065
  3. DEPAKOTE [Concomitant]
     Dosage: 125 UNK, UNK
  4. ADDERALL [Concomitant]
     Indication: PRODUCT USED FOR UNKNOWN INDICATION
     Dosage: 20 MG, UNKNOWN
  5. RISPERDAL [Concomitant]
     Indication: PRODUCT USED FOR UNKNOWN INDICATION
     Dosage: 1 MG, UNKNOWN
  6. DEXEDRINE [Concomitant]
     Indication: PRODUCT USED FOR UNKNOWN INDICATION
     Dosage: 15 MG, UNKNOWN
  7. FLURAZEPAM [Concomitant]
     Indication: PRODUCT USED FOR UNKNOWN INDICATION
     Dosage: 15 MG, UNKNOWN
  8. TRIAMCINOLONE [Concomitant]
     Indication: PRODUCT USED FOR UNKNOWN INDICATION
     Dosage: 0.1 %, UNKNOWN

REACTIONS (14)
  - Drug dependence [Unknown]
  - Suicidal ideation [Unknown]
  - Crohn^s disease [Unknown]
  - Anxiety [Not Recovered/Not Resolved]
  - Insomnia [Unknown]
  - Infertility male [Not Recovered/Not Resolved]
  - Depression [Unknown]
  - Weight increased [Unknown]
  - Gynaecomastia [Not Recovered/Not Resolved]
  - Liver disorder [Unknown]
  - Metabolic disorder [Unknown]
  - Nightmare [Not Recovered/Not Resolved]
  - Lacrimation disorder [Not Recovered/Not Resolved]
  - Erectile dysfunction [Not Recovered/Not Resolved]
